FAERS Safety Report 23603297 (Version 2)
Quarter: 2024Q2

REPORT INFORMATION
  Report Type: Report from Study
  Country: US (occurrence: US)
  Receive Date: 20240307
  Receipt Date: 20240502
  Transmission Date: 20240716
  Serious: Yes (Hospitalization, Other)
  Sender: FDA-Public Use
  Company Number: US-ABBVIE-5668169

PATIENT
  Sex: Female

DRUGS (3)
  1. SKYRIZI [Suspect]
     Active Substance: RISANKIZUMAB-RZAA
     Indication: Psoriatic arthropathy
     Dosage: FORM STRENGTH 150 MILLIGRAM, WEEK 4
     Route: 058
     Dates: start: 202304, end: 202304
  2. SKYRIZI [Suspect]
     Active Substance: RISANKIZUMAB-RZAA
     Indication: Psoriasis
     Dosage: FORM STRENGTH 150 MILLIGRAM, WEEK 0
     Route: 058
     Dates: start: 20230315, end: 20230315
  3. SKYRIZI [Suspect]
     Active Substance: RISANKIZUMAB-RZAA
     Dosage: FORM STRENGTH 150MG?STARTDATE 2023
     Route: 058

REACTIONS (11)
  - Knee arthroplasty [Unknown]
  - Hypoaesthesia [Unknown]
  - Dysstasia [Unknown]
  - Gait inability [Unknown]
  - Atrial fibrillation [Unknown]
  - Gait disturbance [Unknown]
  - Pain [Unknown]
  - Joint range of motion decreased [Unknown]
  - Mobility decreased [Unknown]
  - Pain in extremity [Unknown]
  - Peripheral swelling [Unknown]

NARRATIVE: CASE EVENT DATE: 20240101
